FAERS Safety Report 6828290-6 (Version None)
Quarter: 2010Q3

REPORT INFORMATION
  Report Type: 
  Country: None (occurrence: None)
  Receive Date: 20100709
  Receipt Date: 20070206
  Transmission Date: 20110219
  Serious: No
  Sender: FDA-Public Use
  Company Number: US-PFIZER INC-2007010672

PATIENT
  Sex: Female
  Weight: 112.04 kg

DRUGS (14)
  1. CHANTIX [Suspect]
     Indication: SMOKING CESSATION THERAPY
     Dates: start: 20061101, end: 20070101
  2. PRILOSEC [Concomitant]
  3. VALTREX [Concomitant]
     Indication: HERPES VIRUS INFECTION
  4. THEOPHYLLINE [Concomitant]
  5. CRESTOR [Concomitant]
  6. MOTRIN [Concomitant]
  7. NEURONTIN [Concomitant]
  8. ALLEGRA D 24 HOUR [Concomitant]
     Indication: HYPERSENSITIVITY
  9. AUGMENTIN '125' [Concomitant]
     Indication: SINUSITIS
  10. PREDNISONE [Concomitant]
     Indication: SINUSITIS
  11. ACTOS [Concomitant]
     Indication: DIABETES MELLITUS
  12. CYMBALTA [Concomitant]
  13. DUONEB [Concomitant]
  14. COMBIVENT [Concomitant]

REACTIONS (2)
  - DIZZINESS [None]
  - NAUSEA [None]
